FAERS Safety Report 14179535 (Version 2)
Quarter: 2018Q1

REPORT INFORMATION
  Report Type: Report from Study
  Country: GB (occurrence: GB)
  Receive Date: 20171110
  Receipt Date: 20180104
  Transmission Date: 20180508
  Serious: Yes (Life-Threatening, Other)
  Sender: FDA-Public Use
  Company Number: GB-JAZZ-2017-GB-008480

PATIENT
  Age: 8 Month
  Sex: Male
  Weight: 9 kg

DRUGS (55)
  1. COTRIMOXAZOLE [Concomitant]
     Active Substance: SULFAMETHOXAZOLE\TRIMETHOPRIM
     Dosage: 180MG, BID
     Route: 048
     Dates: start: 20170616
  2. PENICILLIN V                       /00001801/ [Concomitant]
     Active Substance: PENICILLIN V
     Indication: PROPHYLAXIS
     Dosage: 62.5MG, BID
     Route: 048
     Dates: start: 20170616, end: 20170626
  3. PENICILLIN V                       /00001801/ [Concomitant]
     Active Substance: PENICILLIN V
     Dosage: 62.5 MG, SINGLE
     Route: 048
     Dates: start: 20170627, end: 20170627
  4. PARACETAMOL [Concomitant]
     Active Substance: ACETAMINOPHEN
     Dosage: 80 MG, TID
     Route: 042
     Dates: start: 20170625, end: 20170626
  5. TAZOCIN [Concomitant]
     Active Substance: PIPERACILLIN SODIUM\TAZOBACTAM SODIUM
     Indication: SEPSIS
     Dosage: 720 MG, BID
     Route: 042
     Dates: start: 20170625, end: 20170625
  6. RANITIDINE. [Concomitant]
     Active Substance: RANITIDINE
     Indication: GASTROINTESTINAL DISORDER
     Dosage: 8MG
     Route: 042
     Dates: start: 20170911
  7. METHYLPREDNISOLONE. [Concomitant]
     Active Substance: METHYLPREDNISOLONE
     Dosage: 8 MG, UNK
     Dates: start: 20170912
  8. ITRACONAZOLE. [Concomitant]
     Active Substance: ITRACONAZOLE
     Dosage: 20 MG, UNK
     Route: 042
     Dates: start: 20170627, end: 20170627
  9. HYDROCORTISONE. [Concomitant]
     Active Substance: HYDROCORTISONE
     Indication: HYPERSENSITIVITY
     Dosage: 50MG, TID
     Route: 042
     Dates: start: 20170616
  10. METOCLOPRAMIDE. [Concomitant]
     Active Substance: METOCLOPRAMIDE
     Dosage: 1MG, TID
     Route: 048
     Dates: start: 20170616
  11. RUXOLITINIB [Concomitant]
     Active Substance: RUXOLITINIB
     Indication: GRAFT VERSUS HOST DISEASE
     Dosage: 2.5MG
     Dates: start: 20170913
  12. COTRIMOXAZOLE [Concomitant]
     Active Substance: SULFAMETHOXAZOLE\TRIMETHOPRIM
     Dosage: 180 MG, BID
     Route: 048
     Dates: start: 20170627, end: 20170630
  13. COTRIMOXAZOLE [Concomitant]
     Active Substance: SULFAMETHOXAZOLE\TRIMETHOPRIM
     Dosage: 100 UNK, UNK
     Route: 042
     Dates: start: 20170909
  14. TAZOBACTAM [Concomitant]
     Active Substance: TAZOBACTAM
     Dosage: 720 MG, BID
     Route: 042
     Dates: start: 20170627, end: 20170627
  15. ONDANSETRON [Concomitant]
     Active Substance: ONDANSETRON
     Indication: PRODUCT USED FOR UNKNOWN INDICATION
     Dosage: 2MG, TID
     Route: 048
     Dates: start: 20170616, end: 20170624
  16. TAZOCIN [Concomitant]
     Active Substance: PIPERACILLIN SODIUM\TAZOBACTAM SODIUM
     Indication: PRODUCT USED FOR UNKNOWN INDICATION
     Dosage: 90MG/KG, QID
     Route: 042
     Dates: start: 20170623, end: 20170624
  17. PENICILLIN V                       /00001801/ [Concomitant]
     Active Substance: PENICILLIN V
     Indication: PROPHYLAXIS
     Dosage: 62.5MG, BID
     Route: 048
     Dates: start: 20170616
  18. ORAMORPH [Concomitant]
     Active Substance: MORPHINE SULFATE
     Indication: PRODUCT USED FOR UNKNOWN INDICATION
     Dosage: 1.4MG, PRN
     Route: 048
     Dates: start: 20170626
  19. METHYLPREDNISOLONE. [Concomitant]
     Active Substance: METHYLPREDNISOLONE
     Dosage: 3 MG, UNK
     Dates: start: 20170829
  20. ACICLOVIR [Concomitant]
     Active Substance: ACYCLOVIR
     Dosage: 105 MG, UNK
     Route: 042
     Dates: start: 20170912
  21. METOCLOPRAMIDE. [Concomitant]
     Active Substance: METOCLOPRAMIDE
     Indication: NAUSEA
     Dosage: 1 MG, QD
     Route: 048
     Dates: start: 20170623, end: 20170624
  22. GENGIGEL                           /00567501/ [Concomitant]
     Indication: PRODUCT USED FOR UNKNOWN INDICATION
     Dosage: UNK
     Route: 048
     Dates: start: 20170908
  23. LIPOSOMAL DOXORUBICIN HCL [Concomitant]
     Active Substance: DOXORUBICIN HYDROCHLORIDE
     Indication: PRODUCT USED FOR UNKNOWN INDICATION
     Dosage: 24MG
     Route: 042
     Dates: start: 20170912
  24. METHYLPREDNISOLONE. [Concomitant]
     Active Substance: METHYLPREDNISOLONE
     Indication: PRODUCT USED FOR UNKNOWN INDICATION
     Dosage: 5MG/KG, QID
     Route: 042
     Dates: start: 20170626, end: 20170626
  25. METHYLPREDNISOLONE. [Concomitant]
     Active Substance: METHYLPREDNISOLONE
     Dosage: 5MG/KG, QID
     Route: 042
     Dates: start: 20170627, end: 20170627
  26. COTRIMOXAZOLE [Concomitant]
     Active Substance: SULFAMETHOXAZOLE\TRIMETHOPRIM
     Indication: PROPHYLAXIS
     Dosage: 180MG, BID
     Route: 048
     Dates: start: 20170617, end: 20170618
  27. ITRACONAZOLE. [Concomitant]
     Active Substance: ITRACONAZOLE
     Indication: PROPHYLAXIS
     Dosage: 40MG, QD
     Route: 048
     Dates: start: 20170616, end: 20170626
  28. PARACETAMOL [Concomitant]
     Active Substance: ACETAMINOPHEN
     Indication: PRODUCT USED FOR UNKNOWN INDICATION
     Dosage: 80 MG, QID
     Route: 042
     Dates: start: 20170623, end: 20170624
  29. PARACETAMOL [Concomitant]
     Active Substance: ACETAMINOPHEN
     Dosage: 80MG, QID
     Route: 042
     Dates: start: 20170627, end: 20170627
  30. METOCLOPRAMIDE. [Concomitant]
     Active Substance: METOCLOPRAMIDE
     Dosage: 1 MG, QD
     Route: 042
     Dates: start: 20170623, end: 20170624
  31. PREDNISOLONE. [Concomitant]
     Active Substance: PREDNISOLONE
     Indication: PRODUCT USED FOR UNKNOWN INDICATION
     Dosage: 3MG, QD
     Route: 048
     Dates: start: 20170616, end: 20170620
  32. ONDANSETRON [Concomitant]
     Active Substance: ONDANSETRON
     Dosage: 2MG, TID
     Route: 042
     Dates: start: 20170616, end: 20170624
  33. ESOMEPRAZOLE [Concomitant]
     Active Substance: ESOMEPRAZOLE
     Indication: PRODUCT USED FOR UNKNOWN INDICATION
     Dosage: 10MG
     Route: 042
     Dates: start: 20170627
  34. FUROSEMIDE. [Concomitant]
     Active Substance: FUROSEMIDE
     Indication: PRODUCT USED FOR UNKNOWN INDICATION
     Dosage: 4MG
     Route: 042
     Dates: start: 20170815
  35. MEROPENEM. [Concomitant]
     Active Substance: MEROPENEM
     Indication: RENAL DISORDER
     Dosage: 160MG
     Route: 042
     Dates: start: 20170912, end: 20170912
  36. RUXOLITINIB [Concomitant]
     Active Substance: RUXOLITINIB
     Indication: VENOOCCLUSIVE DISEASE
  37. COTRIMOXAZOLE [Concomitant]
     Active Substance: SULFAMETHOXAZOLE\TRIMETHOPRIM
     Dosage: 180 MG, BID
     Route: 048
     Dates: start: 20170703, end: 20170703
  38. ACICLOVIR [Concomitant]
     Active Substance: ACYCLOVIR
     Indication: PROPHYLAXIS
     Dosage: 120 MG, QD
     Dates: start: 20170627, end: 20170627
  39. TAZOCIN [Concomitant]
     Active Substance: PIPERACILLIN SODIUM\TAZOBACTAM SODIUM
     Dosage: 720 MG, QID
     Route: 042
     Dates: start: 20170626, end: 20170626
  40. TRANEXAMIC ACID. [Concomitant]
     Active Substance: TRANEXAMIC ACID
     Indication: PRODUCT USED FOR UNKNOWN INDICATION
     Dosage: 80MG
     Route: 042
     Dates: start: 20170912
  41. LACRILUBE [Concomitant]
     Indication: PRODUCT USED FOR UNKNOWN INDICATION
     Route: 047
     Dates: start: 20170827
  42. DEFITELIO [Suspect]
     Active Substance: DEFIBROTIDE SODIUM
     Indication: PROPHYLAXIS
     Dosage: 25 MG/KG, QD
     Route: 042
     Dates: start: 20170227, end: 20170317
  43. DEFITELIO [Suspect]
     Active Substance: DEFIBROTIDE SODIUM
     Dosage: 25 MG/KG, QD
     Dates: start: 20170624
  44. COTRIMOXAZOLE [Concomitant]
     Active Substance: SULFAMETHOXAZOLE\TRIMETHOPRIM
     Dosage: 180MG, BID
     Route: 048
     Dates: start: 20170624, end: 20170625
  45. ACICLOVIR [Concomitant]
     Active Substance: ACYCLOVIR
     Indication: PROPHYLAXIS
     Dosage: 120MG, QID
     Route: 048
     Dates: start: 20170616, end: 20170626
  46. TACROLIMUS. [Concomitant]
     Active Substance: TACROLIMUS
     Indication: GRAFT VERSUS HOST DISEASE
     Dosage: 50?G/KG, BID
     Route: 061
     Dates: start: 20170626, end: 20170627
  47. BENZYDAMINE [Concomitant]
     Active Substance: BENZYDAMINE
     Indication: PRODUCT USED FOR UNKNOWN INDICATION
     Dates: start: 20170907
  48. TAZOBACTAM [Concomitant]
     Active Substance: TAZOBACTAM
     Indication: PRODUCT USED FOR UNKNOWN INDICATION
     Dosage: 720MG
     Route: 042
     Dates: start: 20170623
  49. DOMPERIDONE [Concomitant]
     Active Substance: DOMPERIDONE
     Indication: PRODUCT USED FOR UNKNOWN INDICATION
     Dosage: 3.2MG, TID
     Route: 048
     Dates: start: 20170616, end: 20170627
  50. CHLORPHENAMINE [Concomitant]
     Active Substance: CHLORPHENIRAMINE MALEATE
     Indication: HYPERSENSITIVITY
     Dosage: 2.5MG, QID
     Route: 042
     Dates: start: 20170616
  51. MORPHINE [Concomitant]
     Active Substance: MORPHINE
     Indication: PRODUCT USED FOR UNKNOWN INDICATION
     Dosage: 1.4 MG, PRN
     Route: 048
     Dates: start: 20170626, end: 20170726
  52. OMEPRAZOLE. [Concomitant]
     Active Substance: OMEPRAZOLE
     Indication: PRODUCT USED FOR UNKNOWN INDICATION
     Dosage: 20MG, QD
     Route: 048
     Dates: start: 20170616, end: 20170626
  53. TAZOCIN [Concomitant]
     Active Substance: PIPERACILLIN SODIUM\TAZOBACTAM SODIUM
     Dosage: 720 MG, BID
     Route: 042
     Dates: start: 20170627, end: 20170627
  54. RUXOLITINIB [Concomitant]
     Active Substance: RUXOLITINIB
     Indication: VENOOCCLUSIVE DISEASE
  55. PREDSOL                            /00016201/ [Concomitant]
     Active Substance: PREDNISOLONE
     Indication: PRODUCT USED FOR UNKNOWN INDICATION
     Dosage: 0.5 %, UNK
     Route: 047
     Dates: start: 20170824, end: 20170906

REACTIONS (4)
  - Respiratory disorder [Not Recovered/Not Resolved]
  - Graft versus host disease [Not Recovered/Not Resolved]
  - Cytomegalovirus enterocolitis [Not Recovered/Not Resolved]
  - Product use in unapproved indication [Unknown]

NARRATIVE: CASE EVENT DATE: 20170227
